FAERS Safety Report 9911238 (Version 3)
Quarter: 2014Q2

REPORT INFORMATION
  Report Type: Spontaneous
  Country: US (occurrence: US)
  Receive Date: 20140219
  Receipt Date: 20140602
  Transmission Date: 20141212
  Serious: No
  Sender: FDA-Public Use
  Company Number: US-OTSUKA-US-2014-10311

PATIENT
  Age: 21 Year
  Sex: Male

DRUGS (2)
  1. ABILIFY MAINTENA [Suspect]
     Indication: SCHIZOPHRENIA
     Dosage: 400 MG MILLIGRAM(S), EVERY 30 DAYS
     Route: 030
     Dates: start: 20131217
  2. ANTIPSYCHOTICS [Concomitant]
     Indication: PSYCHOTIC DISORDER
     Dosage: UNK

REACTIONS (2)
  - Paranoia [Recovering/Resolving]
  - Psychotic disorder [Recovering/Resolving]
